FAERS Safety Report 5056216-7 (Version None)
Quarter: 2006Q3

REPORT INFORMATION
  Report Type: 
  Country: None (occurrence: None)
  Receive Date: 20060717
  Receipt Date: 20060706
  Transmission Date: 20061208
  Serious: Yes (Hospitalization)
  Sender: FDA-Public Use
  Company Number: 2006084791

PATIENT
  Age: 83 Year
  Sex: Male

DRUGS (3)
  1. ALDACTONE [Suspect]
     Indication: ESSENTIAL HYPERTENSION
     Dosage: 50 MG (25 MG, 2 IN 1 D), ORAL
     Route: 048
     Dates: end: 20060205
  2. SECTRAL [Suspect]
     Indication: ESSENTIAL HYPERTENSION
     Dosage: 100 MG (100 MG, 1 IN 1 D); ORAL
     Route: 048
     Dates: end: 20060205
  3. VALSARTAN [Suspect]
     Indication: ESSENTIAL HYPERTENSION
     Dosage: 80 MG (80 MG, 1 IN 1 D); ORAL
     Route: 048
     Dates: end: 20060205

REACTIONS (14)
  - BLOOD PRESSURE DECREASED [None]
  - BRADYCARDIA [None]
  - DEHYDRATION [None]
  - DIARRHOEA [None]
  - DYSPNOEA [None]
  - HYPERKALAEMIA [None]
  - HYPONATRAEMIA [None]
  - IATROGENIC INJURY [None]
  - OXYGEN SATURATION DECREASED [None]
  - RENAL CYST [None]
  - RENAL FAILURE ACUTE [None]
  - SINOATRIAL BLOCK [None]
  - SYNCOPE [None]
  - VOMITING [None]
